FAERS Safety Report 6126014-1 (Version None)
Quarter: 2009Q1

REPORT INFORMATION
  Report Type: 
  Country: None (occurrence: None)
  Receive Date: 20090320
  Receipt Date: 20090313
  Transmission Date: 20090719
  Serious: Yes (Hospitalization)
  Sender: FDA-Public Use
  Company Number: US-SOLVAY-00209001495

PATIENT
  Age: 50 Year
  Sex: Male
  Weight: 131.81 kg

DRUGS (10)
  1. JANUMET 50/100 [Concomitant]
     Indication: DIABETES MELLITUS
     Dosage: DAILY DOSE: 2 DOSAGE FORM
     Route: 048
     Dates: start: 20090101
  2. ANDROGEL [Suspect]
     Indication: BLOOD TESTOSTERONE DECREASED
     Dosage: DAILY DOSE: 5 GRAM(S) VIA PUMP
     Route: 062
     Dates: start: 20070101, end: 20080101
  3. ANDROGEL [Suspect]
     Dosage: DAILY DOSE: 7.5 GRAM(S) VIA PUMP
     Route: 062
     Dates: start: 20080101, end: 20080301
  4. ANDROGEL [Suspect]
     Dosage: DAILY DOSE: 10 GRAM(S) VIA PUMP
     Route: 062
     Dates: start: 20080301
  5. METFORMIN HCL [Concomitant]
     Indication: DIABETES MELLITUS
     Dosage: DAILY DOSE:  UNKNOWN
     Route: 048
     Dates: end: 20090101
  6. SIMVASTATIN [Concomitant]
     Indication: BLOOD CHOLESTEROL INCREASED
     Dosage: DAILY DOSE: 80 MILLIGRAM(S)
     Route: 048
  7. LISINOPRIL [Concomitant]
     Indication: DRUG USE FOR UNKNOWN INDICATION
     Dosage: DAILY DOSE: 40 MILLIGRAM(S)
     Route: 048
  8. HYDROCHLOROTHIAZIDE [Concomitant]
     Indication: FLUID RETENTION
     Dosage: DAILY DOSE: 25 MILLIGRAM(S)
     Route: 048
  9. SINGULAIR [Concomitant]
     Indication: LUNG DISORDER
     Dosage: DAILY DOSE:  UNKNOWN, AS USED: 10 MG.
     Route: 048
  10. ALBUTEROL [Concomitant]
     Indication: LUNG DISORDER
     Dosage: DAILY DOSE:  UNKNOWN, ROUTE: ORAL INHALATION.
     Route: 050

REACTIONS (9)
  - BLOOD TESTOSTERONE DECREASED [None]
  - BREAST ENLARGEMENT [None]
  - BREAST TENDERNESS [None]
  - DIVERTICULITIS [None]
  - ERECTILE DYSFUNCTION [None]
  - HAIR COLOUR CHANGES [None]
  - SEMEN DISCOLOURATION [None]
  - SPONTANEOUS PENILE ERECTION [None]
  - TESTICULAR ATROPHY [None]
